FAERS Safety Report 6237715-9 (Version None)
Quarter: 2009Q2

REPORT INFORMATION
  Report Type: 
  Country: None (occurrence: None)
  Receive Date: 20090611
  Receipt Date: 20090608
  Transmission Date: 20091009
  Serious: Yes (Life-Threatening)
  Sender: FDA-Public Use
  Company Number: 2009020301

PATIENT
  Age: 62 Year
  Sex: Male

DRUGS (1)
  1. IMMUNOGLOBULIN NORMAL (IMMUNE GLOBULIN SUBCUTANEOUS (HUMAN)) [Suspect]

REACTIONS (1)
  - CEREBROVASCULAR ACCIDENT [None]
